FAERS Safety Report 20950596 (Version 1)
Quarter: 2022Q2

REPORT INFORMATION
  Report Type: Spontaneous
  Country: US (occurrence: None)
  Receive Date: 20220611
  Receipt Date: 20220611
  Transmission Date: 20220721
  Serious: Yes (Hospitalization)
  Sender: FDA-Public Use
  Company Number: None

PATIENT
  Age: 9 Year
  Sex: Female
  Weight: 39.6 kg

DRUGS (5)
  1. DEXAMETHASONE [Suspect]
     Active Substance: DEXAMETHASONE
     Dates: end: 20220409
  2. CYTARABINE [Suspect]
     Active Substance: CYTARABINE
     Dates: end: 20220409
  3. VINCRISTINE SULFATE [Suspect]
     Active Substance: VINCRISTINE SULFATE
  4. METHOTREXATE [Suspect]
     Active Substance: METHOTREXATE
     Dates: end: 20220419
  5. ONCASPAR [Suspect]
     Active Substance: PEGASPARGASE
     Dates: end: 20220415

REACTIONS (34)
  - Mental status changes [None]
  - Slow response to stimuli [None]
  - Gaze palsy [None]
  - Irritability [None]
  - Aphasia [None]
  - Unresponsive to stimuli [None]
  - Staring [None]
  - Eye movement disorder [None]
  - Muscle twitching [None]
  - Body temperature increased [None]
  - Respiratory rate increased [None]
  - Hypertension [None]
  - Sinus tachycardia [None]
  - White blood cell count decreased [None]
  - Haemoglobin decreased [None]
  - Haematocrit decreased [None]
  - Blood sodium decreased [None]
  - Blood calcium decreased [None]
  - Protein total decreased [None]
  - Blood albumin decreased [None]
  - Alanine aminotransferase increased [None]
  - Ammonia increased [None]
  - Respiratory acidosis [None]
  - Seizure like phenomena [None]
  - Nystagmus [None]
  - Seizure [None]
  - Toxicity to various agents [None]
  - Metabolic disorder [None]
  - Cerebrovascular accident [None]
  - Hypoventilation [None]
  - Pallor [None]
  - Headache [None]
  - Petechiae [None]
  - Pyrexia [None]

NARRATIVE: CASE EVENT DATE: 20220427
